FAERS Safety Report 4932354-1 (Version None)
Quarter: 2006Q1

REPORT INFORMATION
  Report Type: 
  Country: None (occurrence: None)
  Receive Date: 20060303
  Receipt Date: 20060210
  Transmission Date: 20060701
  Serious: Yes (Life-Threatening, Hospitalization, Other)
  Sender: FDA-Public Use
  Company Number: ES-ABBOTT-06P-144-0324687-00

PATIENT
  Sex: Female

DRUGS (7)
  1. ZEMPLAR [Suspect]
     Indication: HYPERPARATHYROIDISM SECONDARY
     Route: 042
     Dates: start: 20051010
  2. PANTOPRAZOLE [Concomitant]
     Indication: DRUG USE FOR UNKNOWN INDICATION
     Route: 048
  3. DIGITOXINA [Concomitant]
     Indication: ATRIAL FIBRILLATION
     Route: 048
  4. ACETYLSALICYLIC ACID SRT [Concomitant]
     Indication: DRUG USE FOR UNKNOWN INDICATION
     Route: 048
  5. BENZOFIBRATO [Concomitant]
     Indication: DYSLIPIDAEMIA
     Route: 048
     Dates: start: 20040720
  6. LEVOTIROXINA [Concomitant]
     Indication: DRUG USE FOR UNKNOWN INDICATION
     Route: 048
     Dates: start: 20040521
  7. SEVELAMER [Concomitant]
     Indication: DRUG USE FOR UNKNOWN INDICATION

REACTIONS (9)
  - ARTERIAL THROMBOSIS LIMB [None]
  - ARTERIOVENOUS FISTULA SITE HAEMORRHAGE [None]
  - HAEMODIALYSIS [None]
  - HYPERKALAEMIA [None]
  - HYPERPHOSPHATAEMIA [None]
  - PROCEDURAL COMPLICATION [None]
  - VASCULAR ACCESS COMPLICATION [None]
  - VENTRICULAR TACHYCARDIA [None]
  - VESSEL PUNCTURE SITE HAEMORRHAGE [None]
